FAERS Safety Report 5828863-3 (Version None)
Quarter: 2008Q3

REPORT INFORMATION
  Report Type: 
  Country: None (occurrence: None)
  Receive Date: 20080731
  Receipt Date: 20080723
  Transmission Date: 20090109
  Serious: Yes (Hospitalization, Other)
  Sender: FDA-Public Use
  Company Number: US-ABBOTT-08P-163-0464929-00

PATIENT
  Sex: Male

DRUGS (4)
  1. NIASPAN [Suspect]
     Indication: BLOOD CHOLESTEROL INCREASED
     Route: 048
     Dates: start: 20030101
  2. NIASPAN [Suspect]
     Route: 048
     Dates: end: 20080701
  3. NIASPAN [Suspect]
     Route: 048
     Dates: start: 20080701, end: 20080701
  4. NIASPAN [Suspect]
     Route: 048
     Dates: start: 20080701

REACTIONS (3)
  - BALANCE DISORDER [None]
  - MALAISE [None]
  - MYOCARDIAL INFARCTION [None]
